FAERS Safety Report 7314702-0 (Version None)
Quarter: 2011Q1

REPORT INFORMATION
  Report Type: 
  Country: None (occurrence: None)
  Receive Date: 20110225
  Receipt Date: 20101129
  Transmission Date: 20110831
  Serious: No
  Sender: FDA-Public Use
  Company Number: US-MYLANLABS-2010S1020920

PATIENT
  Age: 15 Year
  Sex: Male
  Weight: 97.52 kg

DRUGS (1)
  1. AMNESTEEM [Suspect]
     Indication: ACNE
     Route: 048
     Dates: start: 20100924, end: 20101021

REACTIONS (4)
  - AGITATION [None]
  - DEPRESSION [None]
  - AGGRESSION [None]
  - MOOD ALTERED [None]
